FAERS Safety Report 16224455 (Version 4)
Quarter: 2019Q2

REPORT INFORMATION
  Report Type: Spontaneous
  Country: TR (occurrence: TR)
  Receive Date: 20190422
  Receipt Date: 20190522
  Transmission Date: 20190711
  Serious: Yes (Other)
  Sender: FDA-Public Use
  Company Number: TR-PROVELL PHARMACEUTICALS-2066107

PATIENT
  Age: 48 Year
  Sex: Female
  Weight: 60 kg

DRUGS (5)
  1. ANTEPSIN [Suspect]
     Active Substance: SUCRALFATE
     Dates: start: 20190304
  2. EUTHYROX [Suspect]
     Active Substance: LEVOTHYROXINE SODIUM
     Route: 048
  3. EUTHYROX [Suspect]
     Active Substance: LEVOTHYROXINE SODIUM
     Route: 048
  4. EUTHYROX [Suspect]
     Active Substance: LEVOTHYROXINE SODIUM
     Indication: AUTOIMMUNE THYROIDITIS
     Route: 048
     Dates: start: 20010101
  5. ANTEPSIN [Suspect]
     Active Substance: SUCRALFATE
     Dates: start: 20181217, end: 20190303

REACTIONS (4)
  - Intentional product use issue [Unknown]
  - Blood thyroid stimulating hormone increased [None]
  - Alopecia [Recovered/Resolved]
  - Madarosis [None]

NARRATIVE: CASE EVENT DATE: 20181219
